FAERS Safety Report 15815193 (Version 2)
Quarter: 2019Q1

REPORT INFORMATION
  Report Type: Spontaneous
  Country: IE (occurrence: IE)
  Receive Date: 20190112
  Receipt Date: 20190130
  Transmission Date: 20190417
  Serious: Yes (Other)
  Sender: FDA-Public Use
  Company Number: IE-ACCORD-101692

PATIENT
  Age: 62 Year
  Sex: Male

DRUGS (3)
  1. CARBOPLATIN. [Suspect]
     Active Substance: CARBOPLATIN
     Indication: PRODUCT USED FOR UNKNOWN INDICATION
  2. CLOZARIL [Suspect]
     Active Substance: CLOZAPINE
     Indication: SCHIZOPHRENIA
     Dosage: UNK
     Route: 048
     Dates: start: 20010701, end: 20180313
  3. ETOPOSIDE. [Suspect]
     Active Substance: ETOPOSIDE
     Indication: PRODUCT USED FOR UNKNOWN INDICATION

REACTIONS (8)
  - Haemoglobin decreased [Not Recovered/Not Resolved]
  - Lung neoplasm malignant [Unknown]
  - Thrombocytopenia [Not Recovered/Not Resolved]
  - Neutrophil count increased [Unknown]
  - White blood cell count decreased [Recovered/Resolved]
  - Metastasis [Unknown]
  - Neutropenia [Recovered/Resolved]
  - White blood cell count increased [Unknown]

NARRATIVE: CASE EVENT DATE: 20170517
